FAERS Safety Report 19041334 (Version 1)
Quarter: 2021Q1

REPORT INFORMATION
  Report Type: Spontaneous
  Country: BR (occurrence: BR)
  Receive Date: 20210323
  Receipt Date: 20210323
  Transmission Date: 20210420
  Serious: Yes (Other)
  Sender: FDA-Public Use
  Company Number: BR-CIPLA LTD.-2021BR02064

PATIENT

DRUGS (5)
  1. PACLITAXEL. [Suspect]
     Active Substance: PACLITAXEL
     Indication: SQUAMOUS CELL CARCINOMA OF SKIN
     Dosage: UNK, 13 CYCLES
     Route: 065
  2. ITRACONAZOLE. [Concomitant]
     Active Substance: ITRACONAZOLE
     Indication: CHROMOBLASTOMYCOSIS
     Dosage: 200 MILLIGRAM A DAY, ONCE A DAY, FIVE TIMES PER WEEK
     Route: 065
  3. MODIK [Concomitant]
     Indication: CHROMOBLASTOMYCOSIS
     Dosage: 50 MG/G, ONCE A DAY, FIVE TIMES PER WEEK
     Route: 061
  4. CARBOPLATIN. [Suspect]
     Active Substance: CARBOPLATIN
     Indication: SQUAMOUS CELL CARCINOMA OF SKIN
     Dosage: UNK, 13 CYCLES
     Route: 065
  5. ACITRETIN. [Concomitant]
     Active Substance: ACITRETIN
     Indication: CHROMOBLASTOMYCOSIS
     Dosage: 50 MG/KG, ONCE A DAY, FIVE TIMES PER WEEK
     Route: 065

REACTIONS (1)
  - Drug ineffective [Unknown]
